FAERS Safety Report 9246089 (Version 1)
Quarter: 2013Q2

REPORT INFORMATION
  Report Type: Report from Study
  Country: ZA (occurrence: ZA)
  Receive Date: 20130422
  Receipt Date: 20130422
  Transmission Date: 20140414
  Serious: Yes (Death)
  Sender: FDA-Public Use
  Company Number: ZA-ROCHE-1216412

PATIENT
  Sex: Female

DRUGS (5)
  1. RECORMON [Suspect]
     Indication: NEPHROGENIC ANAEMIA
     Route: 058
     Dates: start: 20070531
  2. RECORMON [Suspect]
     Route: 058
     Dates: start: 201210
  3. MIRCERA [Suspect]
     Indication: NEPHROGENIC ANAEMIA
     Route: 065
     Dates: start: 200912
  4. MIRCERA [Suspect]
     Route: 065
     Dates: start: 201002
  5. MIRCERA [Suspect]
     Route: 065
     Dates: start: 201102

REACTIONS (1)
  - Death [Fatal]
